FAERS Safety Report 4332198-8 (Version None)
Quarter: 2004Q1

REPORT INFORMATION
  Report Type: 
  Country: None (occurrence: None)
  Receive Date: 20040331
  Receipt Date: 20040317
  Transmission Date: 20041129
  Serious: Yes (Other)
  Sender: FDA-Public Use
  Company Number: 2004015531

PATIENT
  Age: 53 Year
  Sex: Female

DRUGS (4)
  1. LIPITOR [Suspect]
     Indication: BLOOD CHOLESTEROL INCREASED
     Dosage: 10 MG (DAILY), ORAL
     Route: 048
     Dates: start: 20030726, end: 20040224
  2. TRANDOLAPRIL (TRANDOLAPRIL) [Concomitant]
  3. EFONIDIPINE (EFONIDPINE) [Concomitant]
  4. PREDNISOLONE [Concomitant]

REACTIONS (5)
  - APPLICATION SITE REACTION [None]
  - GINGIVAL BLEEDING [None]
  - HAEMORRHAGE SUBCUTANEOUS [None]
  - HAEMORRHAGIC DIATHESIS [None]
  - THROMBOCYTOPENIA [None]
